FAERS Safety Report 14247457 (Version 2)
Quarter: 2017Q4

REPORT INFORMATION
  Report Type: Spontaneous
  Country: DE (occurrence: DE)
  Receive Date: 20171204
  Receipt Date: 20171219
  Transmission Date: 20180321
  Serious: Yes (Life-Threatening)
  Sender: FDA-Public Use
  Company Number: DE-LPDUSPRD-20171635

PATIENT
  Age: 85 Year
  Sex: Male

DRUGS (10)
  1. PANTOPRAZOLE [Concomitant]
     Active Substance: PANTOPRAZOLE
     Dosage: 2 IN 1 D
     Route: 048
  2. RAMIPRIL. [Concomitant]
     Active Substance: RAMIPRIL
     Dosage: 1 IN 1 D
     Route: 048
  3. FERINJECT [Suspect]
     Active Substance: FERRIC CARBOXYMALTOSE
     Dosage: 10 ML IN 100 ML NACL (500 MG)
     Route: 041
     Dates: start: 20170130
  4. TORASEMIDE [Concomitant]
     Active Substance: TORSEMIDE
     Dosage: 3 IN 1 D
     Route: 048
  5. XIPAMIDE [Concomitant]
     Active Substance: XIPAMIDE
     Dosage: 1 IN 1 D
     Route: 048
  6. ALLOPURINOL. [Concomitant]
     Active Substance: ALLOPURINOL
     Dosage: 1 IN 1 D
     Route: 048
     Dates: end: 20170318
  7. SEEBRI [Concomitant]
     Active Substance: GLYCOPYRRONIUM
     Dosage: 1 IN 1 D
     Route: 065
  8. ACETYLSALICYLIC ACID [Concomitant]
     Active Substance: ASPIRIN
     Dosage: 1 IN 1 D
     Route: 048
  9. ATORVASTATIN [Concomitant]
     Active Substance: ATORVASTATIN
     Dosage: 1 IN 1 D
     Route: 048
  10. DUORESP [Concomitant]
     Active Substance: BUDESONIDE\FORMOTEROL
     Dosage: 2 IN 1 D
     Route: 065

REACTIONS (2)
  - Thrombocytopenia [Unknown]
  - Gastrointestinal haemorrhage [Unknown]

NARRATIVE: CASE EVENT DATE: 20170318
